FAERS Safety Report 12972126 (Version 1)
Quarter: 2016Q4

REPORT INFORMATION
  Report Type: Spontaneous
  Country: US (occurrence: US)
  Receive Date: 20161124
  Receipt Date: 20161124
  Transmission Date: 20170207
  Serious: Yes (Other)
  Sender: FDA-Public Use
  Company Number: US-ACCORD-045706

PATIENT
  Age: 35 Year
  Sex: Female
  Weight: 56.82 kg

DRUGS (5)
  1. OXYCODONE/OXYCODONE HYDROCHLORIDE/OXYCODONE PECTINATE/OXYCODONE TEREPHTHALATE [Suspect]
     Active Substance: OXYCODONE
     Indication: PRODUCT USED FOR UNKNOWN INDICATION
  2. PAROXETINE. [Concomitant]
     Active Substance: PAROXETINE
  3. KRATOM [Concomitant]
     Active Substance: HERBALS
  4. LISINOPRIL/LISINOPRIL DIHYDRATE [Concomitant]
  5. CLONAZEPAM. [Suspect]
     Active Substance: CLONAZEPAM
     Indication: ANXIETY
     Dosage: YELLOW, ROUND, 1 AND 2, SCORED
     Route: 048

REACTIONS (1)
  - Drug screen negative [Unknown]
